FAERS Safety Report 5445588-7 (Version None)
Quarter: 2007Q3

REPORT INFORMATION
  Report Type: 
  Country: None (occurrence: None)
  Receive Date: 20070906
  Receipt Date: 20070828
  Transmission Date: 20080115
  Serious: Yes (Disabling)
  Sender: FDA-Public Use
  Company Number: AU-SHR-AU-2007-032525

PATIENT
  Age: 61 Year

DRUGS (3)
  1. CYTARABINE [Suspect]
     Dosage: 4140 MG, UNK
     Route: 042
     Dates: start: 20060327, end: 20060330
  2. NEUPOGEN [Suspect]
     Indication: ACUTE MYELOID LEUKAEMIA
     Dosage: 6 MG, UNK
     Dates: start: 20060331
  3. FLUDARA [Suspect]
     Indication: ACUTE MYELOID LEUKAEMIA
     Dosage: 62.1 MG, UNK
     Route: 042
     Dates: start: 20060327, end: 20060330

REACTIONS (2)
  - CHROMOSOMAL DELETION [None]
  - MYELODYSPLASTIC SYNDROME [None]
